FAERS Safety Report 17444158 (Version 1)
Quarter: 2020Q1

REPORT INFORMATION
  Report Type: Spontaneous
  Country: US (occurrence: US)
  Receive Date: 20200221
  Receipt Date: 20200221
  Transmission Date: 20200409
  Serious: No
  Sender: FDA-Public Use
  Company Number: US-TORRENT-00007731

PATIENT

DRUGS (1)
  1. PANTOPRAZOLE [Suspect]
     Active Substance: PANTOPRAZOLE
     Indication: PRODUCT USED FOR UNKNOWN INDICATION
     Dosage: UNKNOWN
     Dates: start: 20181215

REACTIONS (4)
  - Depression [Unknown]
  - Abdominal pain upper [Unknown]
  - Dysuria [Unknown]
  - Breast pain [Unknown]

NARRATIVE: CASE EVENT DATE: 201812
